FAERS Safety Report 10394696 (Version 1)
Quarter: 2014Q3

REPORT INFORMATION
  Report Type: Spontaneous
  Country: US (occurrence: US)
  Receive Date: 20140820
  Receipt Date: 20140820
  Transmission Date: 20150326
  Serious: Yes (Other)
  Sender: FDA-Public Use
  Company Number: US-JNJFOC-20140810596

PATIENT
  Age: 62 Year
  Sex: Male
  Weight: 107.96 kg

DRUGS (9)
  1. PEPCID AC [Suspect]
     Active Substance: FAMOTIDINE
     Indication: ULCER
     Dosage: 1 TABLET DAILY EVERY NIGHT
     Route: 048
  2. LISINOPRIL. [Concomitant]
     Active Substance: LISINOPRIL
     Indication: HYPERTENSION
     Dosage: 3 YEARS
     Route: 065
  3. SPIRIVA [Concomitant]
     Active Substance: TIOTROPIUM BROMIDE MONOHYDRATE
     Indication: RESPIRATORY DISORDER
     Dosage: 4 MONTHS
     Route: 065
  4. FENOFIBRATE. [Concomitant]
     Active Substance: FENOFIBRATE
     Indication: BLOOD CHOLESTEROL ABNORMAL
     Dosage: 3 YEAR
     Route: 065
  5. ROSUVASTATIN [Concomitant]
     Active Substance: ROSUVASTATIN
     Indication: BLOOD CHOLESTEROL ABNORMAL
     Dosage: 3 YEAR
     Route: 065
  6. PEPCID AC [Suspect]
     Active Substance: FAMOTIDINE
     Route: 048
  7. INHALER NOS [Concomitant]
     Active Substance: UNSPECIFIED INGREDIENT
     Indication: PRODUCT USED FOR UNKNOWN INDICATION
     Route: 065
  8. GLIPIZIDE. [Concomitant]
     Active Substance: GLIPIZIDE
     Indication: DIABETES MELLITUS
     Dosage: 5 MG HALF; 1 AND HALF YEAR
     Route: 065
  9. METFORMIN [Concomitant]
     Active Substance: METFORMIN HYDROCHLORIDE
     Indication: DIABETES MELLITUS
     Dosage: 3 YEARS
     Route: 065

REACTIONS (2)
  - Peptic ulcer [Not Recovered/Not Resolved]
  - Circumstance or information capable of leading to medication error [Unknown]
